FAERS Safety Report 8377787-9 (Version None)
Quarter: 2012Q2

REPORT INFORMATION
  Report Type: 
  Country: None (occurrence: None)
  Receive Date: 20120522
  Receipt Date: 20120516
  Transmission Date: 20120825
  Serious: Yes (Other)
  Sender: FDA-Public Use
  Company Number: US-PFIZER INC-2012105083

PATIENT
  Age: 35 Year
  Sex: Male

DRUGS (1)
  1. XANAX [Suspect]
     Indication: PANIC ATTACK
     Dosage: UNK

REACTIONS (19)
  - EMOTIONAL DISORDER [None]
  - DRUG TOLERANCE [None]
  - IMPAIRED WORK ABILITY [None]
  - BRAIN INJURY [None]
  - CONVULSION [None]
  - AMNESIA [None]
  - LIFE EXPECTANCY SHORTENED [None]
  - TEMPERATURE INTOLERANCE [None]
  - POST-TRAUMATIC STRESS DISORDER [None]
  - WITHDRAWAL SYNDROME [None]
  - MENTAL DISORDER [None]
  - BALANCE DISORDER [None]
  - NERVOUS SYSTEM DISORDER [None]
  - RESPIRATORY DISORDER [None]
  - SLEEP DISORDER [None]
  - CONFUSIONAL STATE [None]
  - MENTAL IMPAIRMENT [None]
  - HEADACHE [None]
  - PHOTOSENSITIVITY REACTION [None]
